FAERS Safety Report 21803771 (Version 2)
Quarter: 2023Q1

REPORT INFORMATION
  Report Type: Report from Study
  Country: US (occurrence: US)
  Receive Date: 20230102
  Receipt Date: 20230102
  Transmission Date: 20230417
  Serious: No
  Sender: FDA-Public Use
  Company Number: US-ABBVIE-4240792

PATIENT
  Sex: Female

DRUGS (1)
  1. HUMIRA [Suspect]
     Active Substance: ADALIMUMAB
     Indication: Rheumatoid arthritis
     Dosage: CITRATE FREE?ONSET DATE OF EVENT UPPER RESPIRATORY INFECTION WAS 2022.
     Route: 058
     Dates: start: 20221111

REACTIONS (1)
  - Upper respiratory tract infection [Recovering/Resolving]
